FAERS Safety Report 17021531 (Version 2)
Quarter: 2019Q4

REPORT INFORMATION
  Report Type: Spontaneous
  Country: US (occurrence: US)
  Receive Date: 20191112
  Receipt Date: 20191115
  Transmission Date: 20200122
  Serious: No
  Sender: FDA-Public Use
  Company Number: US-PFIZER INC-2019485849

PATIENT
  Age: 87 Year
  Sex: Male

DRUGS (1)
  1. XALKORI [Suspect]
     Active Substance: CRIZOTINIB
     Indication: LUNG NEOPLASM MALIGNANT
     Dosage: 250 MG, UNK

REACTIONS (4)
  - Dyspnoea [Not Recovered/Not Resolved]
  - Cough [Unknown]
  - Dysgeusia [Unknown]
  - Fatigue [Unknown]
